FAERS Safety Report 14627406 (Version 1)
Quarter: 2018Q1

REPORT INFORMATION
  Report Type: Spontaneous
  Country: US (occurrence: US)
  Receive Date: 20180312
  Receipt Date: 20180312
  Transmission Date: 20180509
  Serious: No
  Sender: FDA-Public Use
  Company Number: PHEH2018US009710

PATIENT
  Sex: Female

DRUGS (1)
  1. TYKERB [Suspect]
     Active Substance: LAPATINIB DITOSYLATE
     Indication: CARDIAC FAILURE
     Dosage: 2 DF, QD (ON AN EMPLTY STOMACH 1 HE BEFORE AND 1 HR AFTER MEAL)
     Route: 048
     Dates: start: 20180115

REACTIONS (2)
  - Rash pruritic [Not Recovered/Not Resolved]
  - Product use in unapproved indication [Unknown]
